FAERS Safety Report 8368356-5 (Version None)
Quarter: 2012Q2

REPORT INFORMATION
  Report Type: 
  Country: None (occurrence: None)
  Receive Date: 20120517
  Receipt Date: 20120508
  Transmission Date: 20120825
  Serious: Yes (Hospitalization, Other)
  Sender: FDA-Public Use
  Company Number: DE-ELI_LILLY_AND_COMPANY-DE201205002413

PATIENT
  Sex: Female

DRUGS (5)
  1. VITAMIN D [Concomitant]
  2. ANALGESICS [Concomitant]
     Dosage: UNK, PRN
  3. ANTIHYPERTENSIVES [Concomitant]
  4. CALCIUM [Concomitant]
  5. FORTEO [Suspect]
     Indication: OSTEOPOROSIS
     Dosage: UNK, QD
     Route: 058
     Dates: start: 20100920

REACTIONS (3)
  - PROSTHESIS IMPLANTATION [None]
  - DEVICE BREAKAGE [None]
  - JOINT SWELLING [None]
